FAERS Safety Report 16239597 (Version 1)
Quarter: 2019Q2

REPORT INFORMATION
  Report Type: Report from Study
  Country: US (occurrence: US)
  Receive Date: 20190425
  Receipt Date: 20190425
  Transmission Date: 20190711
  Serious: Yes (Death)
  Sender: FDA-Public Use
  Company Number: US-MYLANLABS-2019M1039055

PATIENT
  Age: 59 Year
  Sex: Male

DRUGS (4)
  1. METHOTREXATE. [Suspect]
     Active Substance: METHOTREXATE
     Indication: CHEMOTHERAPY
     Dosage: 3.5 G/M2 OVER 2H
     Route: 041
  2. PROCARBAZINE [Suspect]
     Active Substance: PROCARBAZINE
     Indication: CHEMOTHERAPY
     Dosage: 100 MILLIGRAM/SQ. METER, QD
     Route: 048
  3. VINCRISTINE [Suspect]
     Active Substance: VINCRISTINE
     Indication: CHEMOTHERAPY
     Dosage: 2 MILLIGRAM
     Route: 040
  4. CYTARABINE. [Suspect]
     Active Substance: CYTARABINE
     Indication: CHEMOTHERAPY
     Route: 065

REACTIONS (1)
  - Dementia [Fatal]
